FAERS Safety Report 17003085 (Version 1)
Quarter: 2019Q4

REPORT INFORMATION
  Report Type: Report from Study
  Country: ES (occurrence: ES)
  Receive Date: 20191107
  Receipt Date: 20191107
  Transmission Date: 20200122
  Serious: Yes (Other)
  Sender: FDA-Public Use
  Company Number: ES-TEVA-2019-ES-1133228

PATIENT
  Age: 44 Year
  Sex: Female

DRUGS (2)
  1. COPAXONE [Suspect]
     Active Substance: GLATIRAMER ACETATE
     Indication: RELAPSING-REMITTING MULTIPLE SCLEROSIS
     Route: 058
     Dates: start: 201507
  2. ROSUVASTATINA [Concomitant]
     Active Substance: ROSUVASTATIN
     Dosage: 13 MILLIGRAM DAILY;
     Route: 048
     Dates: start: 20160113, end: 2017

REACTIONS (1)
  - Lipodystrophy acquired [Not Recovered/Not Resolved]

NARRATIVE: CASE EVENT DATE: 201910
